FAERS Safety Report 14868231 (Version 4)
Quarter: 2020Q3

REPORT INFORMATION
  Report Type: Report from Study
  Country: CA (occurrence: CA)
  Receive Date: 20180509
  Receipt Date: 20200915
  Transmission Date: 20201102
  Serious: Yes (Other)
  Sender: FDA-Public Use
  Company Number: CA-BRISTOL-MYERS SQUIBB COMPANY-BMS-2018-034372

PATIENT
  Sex: Male

DRUGS (2)
  1. ABATACEPT [Suspect]
     Active Substance: ABATACEPT
     Indication: POLYCHONDRITIS
     Dosage: 125 MG, QWK
     Route: 065
     Dates: start: 20180412
  2. ABATACEPT [Suspect]
     Active Substance: ABATACEPT
     Indication: NEUROPATHY PERIPHERAL

REACTIONS (4)
  - Anxiety [Unknown]
  - Intentional product use issue [Unknown]
  - Cardiac flutter [Unknown]
  - Thrombosis [Unknown]
